FAERS Safety Report 6772016-1 (Version None)
Quarter: 2010Q2

REPORT INFORMATION
  Report Type: 
  Country: None (occurrence: None)
  Receive Date: 20100616
  Receipt Date: 20100112
  Transmission Date: 20101027
  Serious: No
  Sender: FDA-Public Use
  Company Number: US-ASTRAZENECA-2009SE13271

PATIENT
  Sex: Female
  Weight: 88.9 kg

DRUGS (7)
  1. RHINOCORT [Suspect]
     Indication: SINUSITIS
     Dosage: 64 MCG DAILY
     Route: 045
     Dates: start: 20080101
  2. SYMBICORT [Suspect]
     Indication: CHRONIC OBSTRUCTIVE PULMONARY DISEASE
     Route: 055
     Dates: start: 20080101
  3. ACIPHEX [Concomitant]
  4. HYTRIN [Concomitant]
  5. LYRICA [Concomitant]
  6. TRICOR [Concomitant]
  7. LIPITOR [Concomitant]

REACTIONS (5)
  - ORAL CANDIDIASIS [None]
  - PNEUMONIA [None]
  - THROAT IRRITATION [None]
  - TRANSIENT ISCHAEMIC ATTACK [None]
  - VOMITING [None]
